FAERS Safety Report 4570053-9 (Version None)
Quarter: 2005Q1

REPORT INFORMATION
  Report Type: 
  Country: None (occurrence: None)
  Receive Date: 20050131
  Receipt Date: 20050119
  Transmission Date: 20050727
  Serious: Yes (Disabling)
  Sender: FDA-Public Use
  Company Number: 05H-163-0287528-00

PATIENT
  Age: 58 Year
  Sex: Male
  Weight: 108 kg

DRUGS (7)
  1. NOREPINEPHRINE INJECTION (NOREPINEPHRINE BITARTRATE INJECTION) (NOREPI [Suspect]
     Indication: BLOOD PRESSURE INCREASED
     Dosage: 0.37 UG/KG/MIN, INFUSION
  2. NOREPINEPHRINE INJECTION (NOREPINEPHRINE BITARTRATE INJECTION) (NOREPI [Suspect]
     Indication: CARDIAC OUTPUT INCREASED
     Dosage: 0.37 UG/KG/MIN, INFUSION
  3. VASOPRESSIN INJECTION [Suspect]
     Indication: BLOOD PRESSURE INCREASED
     Dosage: 0.08 U/MIN
  4. VASOPRESSIN INJECTION [Suspect]
     Indication: CARDIAC OUTPUT INCREASED
     Dosage: 0.08 U/MIN
  5. RINGER'S [Concomitant]
  6. BLOOD AND RELATED PRODUCTS [Concomitant]
  7. IV FLUIDS [Concomitant]

REACTIONS (3)
  - BLINDNESS [None]
  - INJURY [None]
  - OPTIC ISCHAEMIC NEUROPATHY [None]
